FAERS Safety Report 5813903-8 (Version None)
Quarter: 2008Q3

REPORT INFORMATION
  Report Type: 
  Country: None (occurrence: None)
  Receive Date: 20080714
  Receipt Date: 20080702
  Transmission Date: 20090109
  Serious: Yes (Other)
  Sender: FDA-Public Use
  Company Number: 2008017543

PATIENT
  Age: 55 Year
  Sex: Female
  Weight: 68.0396 kg

DRUGS (4)
  1. LISTERINE WHITENING PRE-BRUSH RINSE (NO ACTIVE INGREDIENT) [Suspect]
     Indication: DENTAL CARE
     Dosage: 2 TEASPOONS TWICE PER DAY (2 IN 1 D), ORAL
     Route: 048
     Dates: start: 20080501, end: 20080514
  2. VYTORIN [Concomitant]
  3. LITHIUM CARBONATE [Concomitant]
  4. KLONOPIN [Concomitant]

REACTIONS (5)
  - APPLICATION SITE BURN [None]
  - DYSGEUSIA [None]
  - ORAL FUNGAL INFECTION [None]
  - TONGUE DISCOLOURATION [None]
  - TONGUE DISORDER [None]
